FAERS Safety Report 6578715-9 (Version None)
Quarter: 2010Q1

REPORT INFORMATION
  Report Type: 
  Country: None (occurrence: None)
  Receive Date: 20100202
  Receipt Date: 20100118
  Transmission Date: 20100710
  Serious: Yes (Other)
  Sender: FDA-Public Use
  Company Number: SK-001284

PATIENT
  Age: 13 Year
  Sex: Male

DRUGS (1)
  1. MINIRIN [Suspect]
     Indication: ENURESIS
     Dosage: 120 ?G, SUBLINGUAL
     Route: 060
     Dates: start: 20090714, end: 20091208

REACTIONS (8)
  - ABNORMAL BEHAVIOUR [None]
  - AFFECT LABILITY [None]
  - APATHY [None]
  - EDUCATIONAL PROBLEM [None]
  - HYPERSOMNIA [None]
  - LETHARGY [None]
  - REFUSAL OF TREATMENT BY RELATIVE [None]
  - SOMNOLENCE [None]
